FAERS Safety Report 4861066-8 (Version None)
Quarter: 2005Q4

REPORT INFORMATION
  Report Type: 
  Country: None (occurrence: None)
  Receive Date: 20051220
  Receipt Date: 20051121
  Transmission Date: 20060501
  Serious: Yes (Hospitalization, Other)
  Sender: FDA-Public Use
  Company Number: US-GLAXOSMITHKLINE-A0583411A

PATIENT
  Sex: Female

DRUGS (11)
  1. ADVAIR DISKUS 250/50 [Suspect]
     Indication: DRUG USE FOR UNKNOWN INDICATION
     Dosage: 1PUFF TWICE PER DAY
     Route: 055
  2. FLOVENT [Suspect]
     Indication: ASTHMA
     Dosage: 220MCG TWICE PER DAY
     Route: 055
  3. IPRATROPIUM BROMIDE [Concomitant]
  4. ALLEGRA [Concomitant]
  5. LORAZEPAM [Concomitant]
  6. PREVACID [Concomitant]
  7. SYNTHROID [Concomitant]
  8. CARDIZEM [Concomitant]
  9. PAROXETINE HCL [Concomitant]
  10. NITROLINGUAL [Concomitant]
  11. FORTEO [Concomitant]

REACTIONS (6)
  - ASTHENIA [None]
  - GASTRIC POLYPS [None]
  - GENERAL PHYSICAL HEALTH DETERIORATION [None]
  - PALPITATIONS [None]
  - PULMONARY FIBROSIS [None]
  - SOMNOLENCE [None]
